FAERS Safety Report 24313768 (Version 1)
Quarter: 2024Q3

REPORT INFORMATION
  Report Type: Report from Study
  Country: BR (occurrence: BR)
  Receive Date: 20240912
  Receipt Date: 20240912
  Transmission Date: 20241017
  Serious: Yes (Hospitalization)
  Sender: ELI LILLY AND CO
  Company Number: BR-Merck Healthcare KGaA-2024046805

PATIENT
  Age: 87 Year
  Sex: Male

DRUGS (1)
  1. CETUXIMAB [Suspect]
     Active Substance: CETUXIMAB
     Indication: Tongue neoplasm
     Dosage: UNK UNK, UNKNOWN
     Route: 042

REACTIONS (7)
  - Cerebrovascular accident [Not Recovered/Not Resolved]
  - Haematological infection [Not Recovered/Not Resolved]
  - Agitation [Not Recovered/Not Resolved]
  - Disorientation [Recovered/Resolved]
  - Oropharyngeal pain [Not Recovered/Not Resolved]
  - Skin reaction [Not Recovered/Not Resolved]
  - Asthenia [Not Recovered/Not Resolved]

NARRATIVE: CASE EVENT DATE: 20040826
